FAERS Safety Report 4829172-1 (Version None)
Quarter: 2005Q4

REPORT INFORMATION
  Report Type: 
  Country: None (occurrence: None)
  Receive Date: 20051028
  Receipt Date: 20050830
  Transmission Date: 20060501
  Serious: No
  Sender: FDA-Public Use
  Company Number: COT_0206_2005

PATIENT
  Age: 63 Year
  Sex: Male
  Weight: 131 kg

DRUGS (15)
  1. VENTAVIS [Suspect]
     Indication: PULMONARY HYPERTENSION
     Dosage: 5 MCG 6XD IH
     Route: 055
     Dates: start: 20050823
  2. VENTAVIS [Suspect]
     Indication: PULMONARY HYPERTENSION
     Dosage: 5 MCG 6XD IH
     Route: 055
     Dates: start: 20050823
  3. TRACLEER [Concomitant]
  4. LASIX [Concomitant]
  5. PLAQUENIL [Concomitant]
  6. VITAMIN E [Concomitant]
  7. MULTI-VITAMIN [Concomitant]
  8. PREVACID [Concomitant]
  9. ZOLOFT [Concomitant]
  10. AMBIEN [Concomitant]
  11. PREDNISONE [Concomitant]
  12. COZAAR [Concomitant]
  13. ASPIRIN [Concomitant]
  14. ZETIA [Concomitant]
  15. VIACTIV [Concomitant]

REACTIONS (2)
  - COUGH [None]
  - DRY MOUTH [None]
